FAERS Safety Report 7769042-2 (Version None)
Quarter: 2011Q3

REPORT INFORMATION
  Report Type: 
  Country: None (occurrence: None)
  Receive Date: 20110922
  Receipt Date: 20101027
  Transmission Date: 20111222
  Serious: No
  Sender: FDA-Public Use
  Company Number: US-ASTRAZENECA-2010SE51134

PATIENT
  Age: 38 Year
  Sex: Female
  Weight: 65.8 kg

DRUGS (10)
  1. FLEXERIL [Concomitant]
     Indication: PAIN
  2. SEROQUEL [Suspect]
     Indication: INSOMNIA
     Dosage: 25-50 MG HS
     Route: 048
     Dates: start: 20050101
  3. ANAPROX [Concomitant]
     Dosage: BID
  4. NORFLEX [Concomitant]
     Indication: PAIN
     Dosage: BID
  5. PRILOSEC [Concomitant]
     Indication: GASTROINTESTINAL DISORDER
  6. SEROQUEL [Suspect]
     Indication: BIPOLAR DISORDER
     Dosage: 25-50 MG HS
     Route: 048
     Dates: start: 20050101
  7. VICODIN [Concomitant]
     Indication: PAIN
  8. NAPROXEN [Concomitant]
     Dosage: BID
  9. LAMICTAL [Concomitant]
  10. LORATADINE [Concomitant]
     Indication: HYPERSENSITIVITY

REACTIONS (4)
  - ACCIDENT AT WORK [None]
  - SPINAL COLUMN INJURY [None]
  - ROTATOR CUFF SYNDROME [None]
  - INTERVERTEBRAL DISC PROTRUSION [None]
